FAERS Safety Report 10753469 (Version 1)
Quarter: 2015Q1

REPORT INFORMATION
  Report Type: Spontaneous
  Country: US (occurrence: US)
  Receive Date: 20150131
  Receipt Date: 20150131
  Transmission Date: 20150721
  Serious: No
  Sender: FDA-Public Use
  Company Number: US-B.I. PHARMACEUTICALS,INC./RIDGEFIELD-2015-BI-03069BP

PATIENT
  Age: 18 Year
  Sex: Female

DRUGS (1)
  1. MELOXICAM. [Suspect]
     Active Substance: MELOXICAM
     Indication: MIGRAINE
     Dosage: 7.5 MG
     Route: 048
     Dates: start: 20150117, end: 20150119

REACTIONS (5)
  - Syncope [Recovered/Resolved]
  - Off label use [Unknown]
  - Balance disorder [Not Recovered/Not Resolved]
  - Asthenia [Not Recovered/Not Resolved]
  - Dizziness [Not Recovered/Not Resolved]

NARRATIVE: CASE EVENT DATE: 20150117
